FAERS Safety Report 7970848-5 (Version None)
Quarter: 2011Q4

REPORT INFORMATION
  Report Type: 
  Country: None (occurrence: None)
  Receive Date: 20111212
  Receipt Date: 20111203
  Transmission Date: 20120403
  Serious: Yes (Other)
  Sender: FDA-Public Use
  Company Number: US-VIIV HEALTHCARE LIMITED-A0957374A

PATIENT
  Age: 39 Year
  Sex: Female

DRUGS (5)
  1. VIDEX [Suspect]
     Indication: ANTIVIRAL TREATMENT
     Route: 048
     Dates: end: 20110601
  2. EPIVIR [Suspect]
     Indication: ANTIVIRAL TREATMENT
     Route: 048
     Dates: end: 20110601
  3. REYATAZ [Suspect]
     Indication: ANTIVIRAL TREATMENT
     Dosage: 300MG PER DAY
     Route: 048
     Dates: start: 20110624, end: 20110805
  4. NORVIR [Suspect]
     Indication: ANTIVIRAL TREATMENT
     Route: 048
     Dates: start: 20110624, end: 20110805
  5. TRUVADA [Suspect]
     Indication: ANTIVIRAL TREATMENT
     Route: 048
     Dates: start: 20071221, end: 20110720

REACTIONS (2)
  - MATERNAL EXPOSURE DURING PREGNANCY [None]
  - ABORTION SPONTANEOUS [None]
